FAERS Safety Report 18153259 (Version 1)
Quarter: 2020Q3

REPORT INFORMATION
  Report Type: Spontaneous
  Country: US (occurrence: US)
  Receive Date: 20200815
  Receipt Date: 20200815
  Transmission Date: 20201103
  Serious: No
  Sender: FDA-Public Use
  Company Number: US-GLAXOSMITHKLINE-US2020AMR160379

PATIENT

DRUGS (1)
  1. NUCALA [Suspect]
     Active Substance: MEPOLIZUMAB
     Indication: ASTHMA
     Dosage: UNK, CYC
     Route: 065

REACTIONS (4)
  - Obesity [Recovering/Resolving]
  - Drug ineffective [Recovering/Resolving]
  - Asthma [Recovering/Resolving]
  - Therapy change [Unknown]
